FAERS Safety Report 15933541 (Version 1)
Quarter: 2019Q1

REPORT INFORMATION
  Report Type: Report from Study
  Country: BR (occurrence: BR)
  Receive Date: 20190207
  Receipt Date: 20190207
  Transmission Date: 20190417
  Serious: Yes (Other)
  Sender: FDA-Public Use
  Company Number: BR-ROCHE-1671809

PATIENT
  Sex: Female
  Weight: 82 kg

DRUGS (10)
  1. METHOTREXATE. [Concomitant]
     Active Substance: METHOTREXATE
     Indication: RHEUMATOID ARTHRITIS
  2. BRASART HCT [Concomitant]
     Active Substance: HYDROCHLOROTHIAZIDE\VALSARTAN
     Indication: HYPERTENSION
  3. KEFLEX [Concomitant]
     Active Substance: CEPHALEXIN
  4. PURAN [Concomitant]
     Active Substance: LEVOTHYROXINE SODIUM
     Indication: THYROID DISORDER
     Route: 065
  5. BENICAR [Concomitant]
     Active Substance: OLMESARTAN MEDOXOMIL
     Indication: HYPERTENSION
     Dosage: IN THE MORNING AND AFTERNOON
     Route: 065
  6. ACTEMRA [Suspect]
     Active Substance: TOCILIZUMAB
     Indication: RHEUMATOID ARTHRITIS
     Dosage: LATEST RECEIVED INFUSION: 14/AUG/2018.
     Route: 042
     Dates: start: 20151119
  7. ALDACTONE (BRAZIL) [Concomitant]
     Indication: HYPERTENSION
  8. FOLIC ACID. [Concomitant]
     Active Substance: FOLIC ACID
     Indication: RHEUMATOID ARTHRITIS
  9. ATENSINA [Concomitant]
     Active Substance: CLONIDINE
     Indication: HYPERTENSION
     Route: 065
  10. VASOPRIL PLUS [Concomitant]
     Active Substance: ENALAPRIL MALEATE\HYDROCHLOROTHIAZIDE
     Indication: HYPERTENSION
     Dosage: 20/12.5 UNIT NOT REPORTED 9IN THE MORNING AND AFTERNOON)
     Route: 065

REACTIONS (8)
  - Ill-defined disorder [Recovered/Resolved]
  - Rheumatoid arthritis [Recovering/Resolving]
  - Hypertension [Recovering/Resolving]
  - Arthralgia [Not Recovered/Not Resolved]
  - Syncope [Recovered/Resolved]
  - Cough [Not Recovered/Not Resolved]
  - Sciatic nerve neuropathy [Recovered/Resolved]
  - Urinary tract infection [Recovered/Resolved]
